FAERS Safety Report 6102687-4 (Version None)
Quarter: 2009Q1

REPORT INFORMATION
  Report Type: 
  Country: None (occurrence: None)
  Receive Date: 20090304
  Receipt Date: 20090122
  Transmission Date: 20090719
  Serious: No
  Sender: FDA-Public Use
  Company Number: A0762534A

PATIENT
  Sex: Female

DRUGS (8)
  1. REQUIP [Suspect]
     Indication: RESTLESS LEGS SYNDROME
     Dosage: 3MG AT NIGHT
     Route: 048
     Dates: start: 20050101
  2. DYAZIDE [Concomitant]
  3. SYNTHROID [Concomitant]
  4. PLAVIX [Concomitant]
  5. ATENOLOL [Concomitant]
  6. PREMARIN/PROGESTERONE [Concomitant]
  7. LEXAPRO [Concomitant]
  8. VERAPAMIL [Concomitant]

REACTIONS (1)
  - DRUG EFFECT DECREASED [None]
